FAERS Safety Report 21633189 (Version 1)
Quarter: 2022Q4

REPORT INFORMATION
  Report Type: Spontaneous
  Country: US (occurrence: None)
  Receive Date: 20221122
  Receipt Date: 20221122
  Transmission Date: 20230113
  Serious: Yes (Hospitalization)
  Sender: FDA-Public Use
  Company Number: None

PATIENT
  Age: 79 Year
  Sex: Female

DRUGS (1)
  1. AUBAGIO [Suspect]
     Active Substance: TERIFLUNOMIDE
     Indication: Multiple sclerosis
     Dosage: 14MG DAILY ORAL?
     Route: 048

REACTIONS (3)
  - Bronchitis [None]
  - Multiple sclerosis relapse [None]
  - Coronavirus test positive [None]

NARRATIVE: CASE EVENT DATE: 20220913
